FAERS Safety Report 11329317 (Version 1)
Quarter: 2015Q3

REPORT INFORMATION
  Report Type: Spontaneous
  Country: JP (occurrence: None)
  Receive Date: 20150730
  Receipt Date: 20150730
  Transmission Date: 20151125
  Serious: Yes (Death, Hospitalization)
  Sender: FDA-Public Use
  Company Number: 2015JUB00226

PATIENT
  Age: 78 Year
  Sex: Male

DRUGS (2)
  1. PREDNISOLONE (PREDNISOLONE) UNKNOWN [Suspect]
     Active Substance: PREDNISOLONE
     Indication: DRUG REACTION WITH EOSINOPHILIA AND SYSTEMIC SYMPTOMS
  2. CARBAMAZEPINE. [Suspect]
     Active Substance: CARBAMAZEPINE
     Indication: EPILEPSY

REACTIONS (8)
  - Respiratory failure [None]
  - Lymphadenopathy [None]
  - Haematemesis [None]
  - Cytomegalovirus test positive [None]
  - Gastric ulcer [None]
  - Drug reaction with eosinophilia and systemic symptoms [None]
  - Pneumocystis jirovecii pneumonia [None]
  - Cytomegalovirus infection [None]
